FAERS Safety Report 8065244-9 (Version None)
Quarter: 2012Q1

REPORT INFORMATION
  Report Type: 
  Country: None (occurrence: None)
  Receive Date: 20120117
  Receipt Date: 20111230
  Transmission Date: 20120608
  Serious: Yes (Other)
  Sender: FDA-Public Use
  Company Number: NO-1189761

PATIENT
  Age: 76 Year
  Sex: Female

DRUGS (6)
  1. MAXIDEX OPHTHALMIC 0.1% OPHTHALMIC  SUSPENSION (DEXAMETHASONE) ALCON L [Suspect]
     Indication: PREOPERATIVE CARE
     Dosage: 0.1% 5X/DAY; 0.1% TID, TOPICAL
     Route: 061
  2. CYCLOPENTOLATE EYE DROPS (CYCLOPENTOLATE) [Suspect]
     Indication: PREOPERATIVE CARE
     Dosage: TOPICAL
     Route: 061
  3. CEFUROXIME [Suspect]
     Indication: ANTIBIOTIC PROPHYLAXIS
     Dosage: 1 MG, INTRAOCULAR
     Route: 031
  4. BETADINE OPHTHALMIC 0.5% OPHTHALMIC SOLUTION (BETADINE) [Suspect]
     Indication: PREOPERATIVE CARE
     Dosage: FOR 2 MIN BEFORE SURGERY, OPHTHALMIC
     Route: 047
  5. CHLORAMPHENICOL 0.5% EYE DROPS (CHLORAMPHENICOL) [Suspect]
     Indication: ANTIBIOTIC PROPHYLAXIS
     Dosage: 0.5% 5XDAY; 0.5% TID, TOPICAL
     Route: 061
  6. PHENYLEPHRINE EYE DROPS (PHENYLEPHRINE) [Suspect]
     Indication: PREOPERATIVE CARE
     Dosage: TOPICAL
     Route: 061

REACTIONS (1)
  - ENDOPHTHALMITIS [None]
